FAERS Safety Report 4316334-5 (Version None)
Quarter: 2004Q1

REPORT INFORMATION
  Report Type: 
  Country: None (occurrence: None)
  Receive Date: 20040312
  Receipt Date: 20040303
  Transmission Date: 20041129
  Serious: Yes (Death, Hospitalization, Other)
  Sender: FDA-Public Use
  Company Number: FR-BRISTOL-MYERS SQUIBB COMPANY-12523841

PATIENT
  Age: 82 Year
  Sex: Female

DRUGS (11)
  1. FUNGIZONE [Suspect]
     Dates: start: 20040111, end: 20040112
  2. DEPAKENE [Suspect]
     Dates: start: 20031230, end: 20040131
  3. RIVOTRIL [Suspect]
     Dates: start: 20031230
  4. URBANYL [Suspect]
     Route: 048
     Dates: start: 20031230, end: 20040108
  5. AUGMENTIN [Suspect]
     Dates: start: 20031223, end: 20040105
  6. GARDENAL [Suspect]
     Dates: start: 20040131, end: 20040202
  7. OFLOCET [Suspect]
     Dates: start: 20031229, end: 20040105
  8. NOROXIN [Suspect]
     Dates: start: 20031228, end: 20031229
  9. VASTAREL [Suspect]
  10. LIPANTHYL [Suspect]
  11. ALDALIX [Suspect]

REACTIONS (8)
  - CARDIAC ARREST [None]
  - CONFUSIONAL STATE [None]
  - ENCEPHALOPATHY [None]
  - EPILEPSY [None]
  - HYPERAMMONAEMIA [None]
  - OXYGEN SATURATION DECREASED [None]
  - SOMNOLENCE [None]
  - VOMITING [None]
